FAERS Safety Report 17948992 (Version 1)
Quarter: 2020Q2

REPORT INFORMATION
  Report Type: Report from Study
  Country: ES (occurrence: ES)
  Receive Date: 20200626
  Receipt Date: 20200626
  Transmission Date: 20200714
  Serious: Yes (Other)
  Sender: FDA-Public Use
  Company Number: ES-TEVA-2020-ES-1791447

PATIENT
  Age: 68 Year
  Sex: Male
  Weight: 80 kg

DRUGS (6)
  1. AZITROMICINA (7019A) [Suspect]
     Active Substance: AZITHROMYCIN
     Indication: COVID-19
     Dosage: 500 MILLIGRAM
     Route: 048
     Dates: start: 20200414, end: 20200415
  2. HIDROXICLOROQUINA SULFATO (2143SU) [Suspect]
     Active Substance: HYDROXYCHLOROQUINE SULFATE
     Indication: COVID-19
     Dosage: 400 MILLIGRAM
     Route: 048
     Dates: start: 20200414, end: 20200420
  3. KALETRA [Suspect]
     Active Substance: LOPINAVIR\RITONAVIR
     Indication: COVID-19
     Dosage: 2 DOSAGEFORM
     Route: 048
     Dates: start: 20200415, end: 20200415
  4. PIPERACILINA + TAZOBACTAM [Suspect]
     Active Substance: PIPERACILLIN SODIUM\TAZOBACTAM SODIUM
     Indication: COVID-19
     Route: 042
     Dates: start: 20200414, end: 20200420
  5. MICAFUNGINA SODICA (8263SO) [Suspect]
     Active Substance: MICAFUNGIN
     Indication: COVID-19
     Route: 042
     Dates: start: 20200414, end: 20200420
  6. SULFAMETOXAZOL + TRIMETOPRIMA [Suspect]
     Active Substance: SULFAMETHOXAZOLE\TRIMETHOPRIM
     Indication: COVID-19
     Route: 048
     Dates: start: 20200414, end: 20200416

REACTIONS (1)
  - Mixed liver injury [Recovered/Resolved]

NARRATIVE: CASE EVENT DATE: 20200420
